FAERS Safety Report 23740502 (Version 2)
Quarter: 2024Q2

REPORT INFORMATION
  Report Type: Spontaneous
  Country: US (occurrence: US)
  Receive Date: 20240415
  Receipt Date: 20240506
  Transmission Date: 20240716
  Serious: Yes (Other)
  Sender: FDA-Public Use
  Company Number: US-BRISTOL-MYERS SQUIBB COMPANY-2024-057574

PATIENT
  Age: 74 Year
  Sex: Male

DRUGS (2)
  1. REVLIMID [Suspect]
     Active Substance: LENALIDOMIDE
     Indication: Plasma cell myeloma
     Dosage: FREQUENCY: 1 TIME A DAY FOR 21 DAYS ON AND 7 DAYS OFF
     Route: 048
     Dates: start: 202303
  2. REVLIMID [Suspect]
     Active Substance: LENALIDOMIDE
     Route: 048
     Dates: start: 202403

REACTIONS (8)
  - Pain [Unknown]
  - Myalgia [Unknown]
  - Chest pain [Unknown]
  - Abdominal pain upper [Unknown]
  - Muscle spasms [Unknown]
  - Fatigue [Not Recovered/Not Resolved]
  - Neuropathy peripheral [Unknown]
  - Loss of personal independence in daily activities [Unknown]
